FAERS Safety Report 19250978 (Version 1)
Quarter: 2021Q2

REPORT INFORMATION
  Report Type: Spontaneous
  Country: US (occurrence: US)
  Receive Date: 20210512
  Receipt Date: 20210512
  Transmission Date: 20210717
  Serious: No
  Sender: FDA-Public Use
  Company Number: US-BAYER-2021-136317

PATIENT
  Age: 87 Year
  Sex: Male

DRUGS (1)
  1. NUBEQA [Suspect]
     Active Substance: DAROLUTAMIDE
     Indication: PROSTATE CANCER
     Dosage: 300 MG, BID
     Route: 048
     Dates: start: 202001

REACTIONS (4)
  - Pain in extremity [Not Recovered/Not Resolved]
  - Product dose omission issue [None]
  - Off label use [None]
  - Feeling cold [Not Recovered/Not Resolved]

NARRATIVE: CASE EVENT DATE: 20210504
